FAERS Safety Report 18747364 (Version 1)
Quarter: 2021Q1

REPORT INFORMATION
  Report Type: Spontaneous
  Country: JP (occurrence: JP)
  Receive Date: 20210115
  Receipt Date: 20210115
  Transmission Date: 20210419
  Serious: No
  Sender: FDA-Public Use
  Company Number: JP-JNJFOC-A-CH2018-171685

PATIENT
  Age: 13 Year
  Sex: Male
  Weight: 48.6 kg

DRUGS (34)
  1. UPTRAVI [Suspect]
     Active Substance: SELEXIPAG
     Dosage: 0.1 MG, BID
     Route: 048
     Dates: start: 20170119, end: 20170201
  2. UPTRAVI [Suspect]
     Active Substance: SELEXIPAG
     Dosage: 0.55 MG, BID
     Route: 048
     Dates: start: 20170426, end: 20170509
  3. UPTRAVI [Suspect]
     Active Substance: SELEXIPAG
     Dosage: 0.7 MG, BID
     Route: 048
     Dates: start: 20170607, end: 20170620
  4. UPTRAVI [Suspect]
     Active Substance: SELEXIPAG
     Dosage: 0.75 MG, BID
     Route: 048
     Dates: start: 20170621, end: 20170704
  5. UPTRAVI [Suspect]
     Active Substance: SELEXIPAG
     Dosage: 1.0 MG, BID
     Route: 048
     Dates: start: 20170817, end: 20170830
  6. OPSUMIT [Suspect]
     Active Substance: MACITENTAN
     Indication: PULMONARY ARTERIAL HYPERTENSION
     Dosage: 10 MG, QD
     Route: 048
     Dates: start: 20160218
  7. UPTRAVI [Suspect]
     Active Substance: SELEXIPAG
     Dosage: 0.4 MG, BID
     Route: 048
     Dates: start: 20170302, end: 20170320
  8. UPTRAVI [Suspect]
     Active Substance: SELEXIPAG
     Dosage: 1.25 MG, BID
     Route: 048
     Dates: start: 20171012, end: 20171025
  9. ADCIRCA [Concomitant]
     Active Substance: TADALAFIL
     Indication: PULMONARY ARTERIAL HYPERTENSION
     Dosage: 40 MG, QD
     Route: 048
  10. PIMOBENDAN [Concomitant]
     Active Substance: PIMOBENDAN
  11. OXYGEN. [Concomitant]
     Active Substance: OXYGEN
  12. UPTRAVI [Suspect]
     Active Substance: SELEXIPAG
     Dosage: 1.05 MG, BID
     Route: 048
     Dates: start: 20170831, end: 20170913
  13. ALDACTONE A [Concomitant]
     Active Substance: SPIRONOLACTONE
  14. UPTRAVI [Suspect]
     Active Substance: SELEXIPAG
     Dosage: 0.3 MG, BID
     Route: 048
     Dates: start: 20170216, end: 20170301
  15. UPTRAVI [Suspect]
     Active Substance: SELEXIPAG
     Dosage: 0.6 MG, BID
     Route: 048
     Dates: start: 20170510, end: 20170523
  16. UPTRAVI [Suspect]
     Active Substance: SELEXIPAG
     Dosage: 0.8 MG, BID
     Route: 048
     Dates: start: 20170705, end: 20170718
  17. UPTRAVI [Suspect]
     Active Substance: SELEXIPAG
     Dosage: 1.35 MG, BID
     Route: 048
     Dates: start: 20171109, end: 20180118
  18. BERAPROST SODIUM [Concomitant]
     Active Substance: BERAPROST SODIUM
  19. FUROSEMIDE. [Concomitant]
     Active Substance: FUROSEMIDE
  20. ALESION [Concomitant]
     Active Substance: EPINASTINE HYDROCHLORIDE
  21. UPTRAVI [Suspect]
     Active Substance: SELEXIPAG
     Dosage: 0.65 MG, BID
     Route: 048
     Dates: start: 20170524, end: 20170606
  22. UPTRAVI [Suspect]
     Active Substance: SELEXIPAG
     Dosage: 0.85 MG, BID
     Route: 048
     Dates: start: 20170719, end: 20170802
  23. UPTRAVI [Suspect]
     Active Substance: SELEXIPAG
     Dosage: 2.5 MG, QD
     Route: 048
     Dates: start: 2018
  24. FEBURIC [Concomitant]
     Active Substance: FEBUXOSTAT
  25. UPTRAVI [Suspect]
     Active Substance: SELEXIPAG
     Dosage: 0.2 MG, BID
     Route: 048
     Dates: start: 20170202, end: 20170215
  26. UPTRAVI [Suspect]
     Active Substance: SELEXIPAG
     Dosage: 0.9 MG, BID
     Route: 048
     Dates: start: 20170803, end: 20170816
  27. RENIVACE [Concomitant]
     Active Substance: ENALAPRIL
  28. UPTRAVI [Suspect]
     Active Substance: SELEXIPAG
     Dosage: 0.45 MG, BID
     Route: 048
     Dates: start: 20170331, end: 20170411
  29. UPTRAVI [Suspect]
     Active Substance: SELEXIPAG
     Indication: PULMONARY ARTERIAL HYPERTENSION
     Dosage: 0.5 MG, BID
     Route: 048
     Dates: start: 20170412, end: 20170425
  30. UPTRAVI [Suspect]
     Active Substance: SELEXIPAG
     Dosage: 1.1 MG, BID
     Route: 048
     Dates: start: 20170914, end: 20171011
  31. UPTRAVI [Suspect]
     Active Substance: SELEXIPAG
     Dosage: 1.3 MG, BID
     Route: 048
     Dates: start: 20171026, end: 20171108
  32. WARFARIN [Concomitant]
     Active Substance: WARFARIN
  33. ONON [Concomitant]
     Active Substance: PRANLUKAST
  34. RIBALL [Concomitant]
     Active Substance: ALLOPURINOL

REACTIONS (4)
  - Blood creatinine increased [Not Recovered/Not Resolved]
  - Blood urea increased [Not Recovered/Not Resolved]
  - Off label use [Unknown]
  - Diarrhoea [Not Recovered/Not Resolved]

NARRATIVE: CASE EVENT DATE: 20170419
